FAERS Safety Report 9116930 (Version 1)
Quarter: 2013Q1

REPORT INFORMATION
  Report Type: Spontaneous
  Country: US (occurrence: US)
  Receive Date: 20130225
  Receipt Date: 20130225
  Transmission Date: 20140127
  Serious: No
  Sender: FDA-Public Use
  Company Number: US-009507513-1302USA009027

PATIENT
  Sex: Male

DRUGS (3)
  1. RIBAVIRIN [Suspect]
     Indication: HEPATITIS C
     Dosage: UNK
     Dates: start: 20121022
  2. VICTRELIS [Suspect]
     Indication: HEPATITIS C
     Dosage: UNK
     Dates: start: 20121119
  3. PEGASYS [Suspect]
     Indication: HEPATITIS C
     Dosage: UNK
     Dates: start: 20121022

REACTIONS (16)
  - Nervous system disorder [Unknown]
  - Gastrointestinal disorder [Unknown]
  - Laboratory test abnormal [Unknown]
  - Hypoaesthesia [Unknown]
  - Back pain [Unknown]
  - Mouth ulceration [Unknown]
  - Tinnitus [Unknown]
  - Tachycardia [Unknown]
  - Heart rate increased [Unknown]
  - Malaise [Unknown]
  - Dyspnoea [Unknown]
  - Anxiety [Unknown]
  - Chills [Unknown]
  - Nausea [Unknown]
  - Haemoglobin decreased [Unknown]
  - Anaemia [Unknown]
